FAERS Safety Report 22621802 (Version 2)
Quarter: 2023Q2

REPORT INFORMATION
  Report Type: Spontaneous
  Country: JP (occurrence: JP)
  Receive Date: 20230620
  Receipt Date: 20230623
  Transmission Date: 20230721
  Serious: Yes (Other)
  Sender: FDA-Public Use
  Company Number: JP-MLMSERVICE-20230608-4334783-1

PATIENT
  Age: 56 Year
  Sex: Male

DRUGS (1)
  1. HYDROCORTISONE [Suspect]
     Active Substance: HYDROCORTISONE
     Indication: Steroid therapy
     Dosage: 20 MG, 1X/DAY

REACTIONS (2)
  - Unmasking of previously unidentified disease [Unknown]
  - Diabetes insipidus [Unknown]
